FAERS Safety Report 13373334 (Version 15)
Quarter: 2017Q3

REPORT INFORMATION
  Report Type: Spontaneous
  Country: KR (occurrence: KR)
  Receive Date: 20170327
  Receipt Date: 20170904
  Transmission Date: 20171127
  Serious: Yes (Hospitalization, Other)
  Sender: FDA-Public Use
  Company Number: KR-009507513-1703KOR003755

PATIENT
  Age: 78 Year
  Sex: Female

DRUGS (48)
  1. EMEND (FOSAPREPITANT DIMEGLUMINE) [Suspect]
     Active Substance: FOSAPREPITANT DIMEGLUMINE
     Dosage: 150 MG, ONCE
     Route: 042
     Dates: start: 20170421, end: 20170421
  2. ENDIS [Concomitant]
     Indication: COUGH
     Dosage: 300 MG, TID
     Route: 048
     Dates: start: 20170119, end: 20170224
  3. AMLODIPINE BESYLATE. [Concomitant]
     Active Substance: AMLODIPINE BESYLATE
     Indication: HYPERTENSION
     Dosage: 2.5 MG, QD
     Route: 048
     Dates: end: 20170322
  4. VINCRISTINE SULFATE. [Concomitant]
     Active Substance: VINCRISTINE SULFATE
     Indication: CHEMOTHERAPY
     Dosage: 2 MG, ONCE (CYCLE 1)
     Route: 042
     Dates: start: 20170215, end: 20170215
  5. ALOXI [Concomitant]
     Active Substance: PALONOSETRON HYDROCHLORIDE
     Dosage: 0.25 MG, ONCE
     Route: 042
     Dates: start: 20170316, end: 20170316
  6. PENIRAMIN [Concomitant]
     Indication: ECZEMA
     Dosage: 2 MG, QD
     Route: 048
     Dates: start: 20170215, end: 20170224
  7. QUETIAPINE FUMARATE. [Concomitant]
     Active Substance: QUETIAPINE FUMARATE
     Indication: DELIRIUM
     Dosage: 25 MG, QD
     Route: 048
     Dates: start: 20170204, end: 20170422
  8. ENDOXAN [Concomitant]
     Active Substance: CYCLOPHOSPHAMIDE
     Indication: CHEMOTHERAPY
     Dosage: 860 MG, ONCE (CYCLE 1)
     Route: 042
     Dates: start: 20170215, end: 20170215
  9. ENDOXAN [Concomitant]
     Active Substance: CYCLOPHOSPHAMIDE
     Dosage: 530 MG, ONCE (CYCLE 3)
     Route: 042
     Dates: start: 20170421, end: 20170421
  10. ADRIAMYCIN [Concomitant]
     Active Substance: DOXORUBICIN HYDROCHLORIDE
     Dosage: 45 MG, ONCE (CYCLE 2)
     Route: 042
     Dates: start: 20170316, end: 20170316
  11. SOLONDO [Concomitant]
     Active Substance: PREDNISOLONE
     Dosage: 100 MG, ONCE
     Route: 048
     Dates: start: 20170316, end: 20170316
  12. ALOXI [Concomitant]
     Active Substance: PALONOSETRON HYDROCHLORIDE
     Indication: PROPHYLAXIS OF NAUSEA AND VOMITING
     Dosage: 0.25 MG, ONCE
     Route: 042
     Dates: start: 20170215, end: 20170215
  13. PENIRAMIN [Concomitant]
     Indication: PREMEDICATION
     Dosage: 4 MG, ONCE
     Route: 042
     Dates: start: 20170221, end: 20170221
  14. LASIX [Concomitant]
     Active Substance: FUROSEMIDE
     Dosage: 10 MG, BID
     Route: 042
     Dates: start: 20170427
  15. MAGNESIUM OXIDE. [Concomitant]
     Active Substance: MAGNESIUM OXIDE
     Indication: CONSTIPATION PROPHYLAXIS
     Dosage: 250 MG, TID
     Route: 048
     Dates: start: 20170220, end: 20170220
  16. ALOXI [Concomitant]
     Active Substance: PALONOSETRON HYDROCHLORIDE
     Dosage: 0.25 MG, ONCE
     Route: 042
     Dates: start: 20170421, end: 20170421
  17. PENIRAMIN [Concomitant]
     Indication: PREMEDICATION
     Dosage: 4 MG, ONCE
     Route: 042
     Dates: start: 20170215, end: 20170215
  18. METHYLON [Concomitant]
     Active Substance: METHYLPREDNISOLONE
     Indication: ECZEMA
     Dosage: 8 MG, BID
     Route: 048
     Dates: start: 20170220, end: 20170221
  19. DUPHALAC [Concomitant]
     Active Substance: LACTULOSE
     Indication: CONSTIPATION PROPHYLAXIS
     Dosage: 20 ML, TID
     Route: 048
     Dates: start: 20170221, end: 20170306
  20. EMEND (FOSAPREPITANT DIMEGLUMINE) [Suspect]
     Active Substance: FOSAPREPITANT DIMEGLUMINE
     Dosage: 150 MG, ONCE
     Route: 042
     Dates: start: 20170316, end: 20170316
  21. VINCRISTINE SULFATE. [Concomitant]
     Active Substance: VINCRISTINE SULFATE
     Dosage: 1.5 MG, ONCE (CYCLE 2)
     Route: 042
     Dates: start: 20170316, end: 20170316
  22. VINCRISTINE SULFATE. [Concomitant]
     Active Substance: VINCRISTINE SULFATE
     Dosage: 1.5 MG, ONCE (CYCLE 3)
     Route: 042
     Dates: start: 20170421, end: 20170421
  23. PENIRAMIN [Concomitant]
     Dosage: 4 MG, QD
     Route: 042
     Dates: start: 20170322, end: 20170325
  24. AZEPTIN [Concomitant]
     Active Substance: AZELASTINE HYDROCHLORIDE
     Indication: ECZEMA
     Dosage: 1 MG, BID
     Route: 048
     Dates: start: 20170215, end: 20170224
  25. MACPERAN [Concomitant]
     Active Substance: METOCLOPRAMIDE HYDROCHLORIDE
     Indication: PROPHYLAXIS
     Dosage: 5 MG, ONCE
     Route: 048
     Dates: start: 20170220, end: 20170220
  26. DENOGAN [Concomitant]
     Active Substance: PROPACETAMOL HYDROCHLORIDE
     Indication: PREMEDICATION
     Dosage: 1 G, ONCE
     Route: 042
     Dates: start: 20170221, end: 20170221
  27. EMEND (FOSAPREPITANT DIMEGLUMINE) [Suspect]
     Active Substance: FOSAPREPITANT DIMEGLUMINE
     Indication: PROPHYLAXIS OF NAUSEA AND VOMITING
     Dosage: 150 MG, ONCE
     Route: 042
     Dates: start: 20170215, end: 20170215
  28. ENDOXAN [Concomitant]
     Active Substance: CYCLOPHOSPHAMIDE
     Dosage: 660 MG, ONCE (CYCLE 2)
     Route: 042
     Dates: start: 20170316, end: 20170316
  29. SOLONDO [Concomitant]
     Active Substance: PREDNISOLONE
     Dosage: 100 MG, QD
     Route: 048
     Dates: start: 20170421, end: 20170425
  30. TYLENOL EXTENDED RELIEF CAPLETS [Concomitant]
     Active Substance: ACETAMINOPHEN
     Indication: PREMEDICATION
     Dosage: 650 MG, ONCE
     Route: 048
     Dates: start: 20170215, end: 20170215
  31. OLOPAT [Concomitant]
     Indication: ECZEMA
     Dosage: 5 MG, BID
     Route: 048
     Dates: start: 20170215, end: 20170224
  32. NEULASTA [Concomitant]
     Active Substance: PEGFILGRASTIM
     Dosage: 6 MG, ONCE
     Route: 058
     Dates: start: 20170318, end: 20170318
  33. LASIX [Concomitant]
     Active Substance: FUROSEMIDE
     Indication: PREMEDICATION
     Dosage: 20 MG, ONCE
     Route: 042
     Dates: start: 20170221, end: 20170221
  34. LASIX [Concomitant]
     Active Substance: FUROSEMIDE
     Indication: PROPHYLAXIS
     Dosage: 40 MG, QD
     Route: 042
     Dates: start: 20170322, end: 20170331
  35. MABTHERA [Concomitant]
     Active Substance: RITUXIMAB
     Dosage: 590 MG, ONCE (CYCLE 3)
     Route: 042
     Dates: start: 20170421, end: 20170421
  36. NAXEN [Concomitant]
     Indication: PAIN
     Dosage: 500 MG, BID
     Route: 048
     Dates: start: 20170201, end: 20170224
  37. STILLEN (CHINESE MUGWORT) [Concomitant]
     Indication: PROPHYLAXIS
     Dosage: 60 MG, TID
     Route: 048
     Dates: start: 20170201, end: 20170307
  38. CETIRIN [Concomitant]
     Indication: ECZEMA
     Dosage: 5 MG, QD
     Route: 048
     Dates: start: 20170215, end: 20170224
  39. NEULASTA [Concomitant]
     Active Substance: PEGFILGRASTIM
     Indication: PROPHYLAXIS
     Dosage: 6 MG, ONCE
     Route: 058
     Dates: start: 20170221, end: 20170221
  40. LASIX [Concomitant]
     Active Substance: FUROSEMIDE
     Dosage: 20 MG, QD
     Route: 042
     Dates: start: 20170323, end: 20170331
  41. MAGNESIUM OXIDE. [Concomitant]
     Active Substance: MAGNESIUM OXIDE
     Dosage: 500 MG, TID
     Route: 048
     Dates: start: 20170405
  42. ADRIAMYCIN [Concomitant]
     Active Substance: DOXORUBICIN HYDROCHLORIDE
     Indication: CHEMOTHERAPY
     Dosage: 60 MG, ONCE (CYCLE 1)
     Route: 042
     Dates: start: 20170215, end: 20170215
  43. ADRIAMYCIN [Concomitant]
     Active Substance: DOXORUBICIN HYDROCHLORIDE
     Dosage: 36 MG, ONCE (CYCLE 3)
     Route: 042
     Dates: start: 20170421, end: 20170421
  44. MABTHERA [Concomitant]
     Active Substance: RITUXIMAB
     Indication: CHEMOTHERAPY
     Dosage: 590 MG, ONCE (CYCLE 1)
     Route: 042
     Dates: start: 20170215, end: 20170215
  45. MABTHERA [Concomitant]
     Active Substance: RITUXIMAB
     Dosage: 590 MG, ONCE (CYCLE 2)
     Route: 042
     Dates: start: 20170316, end: 20170316
  46. SOLONDO [Concomitant]
     Active Substance: PREDNISOLONE
     Indication: CHEMOTHERAPY
     Dosage: 100 MG, QD
     Route: 048
     Dates: start: 20170215, end: 20170219
  47. MOTILITONE [Concomitant]
     Active Substance: HERBALS
     Indication: PROPHYLAXIS
     Dosage: 1 TABLET, TID
     Route: 048
     Dates: start: 20170201, end: 20170302
  48. NEULASTA [Concomitant]
     Active Substance: PEGFILGRASTIM
     Dosage: 6 MG, ONCE
     Route: 058
     Dates: start: 20170423, end: 20170423

REACTIONS (8)
  - Atrial fibrillation [Recovered/Resolved]
  - Febrile neutropenia [Recovered/Resolved]
  - Urinary tract infection [Recovered/Resolved]
  - Loss of consciousness [Recovered/Resolved]
  - Sepsis [Recovered/Resolved]
  - Pulmonary embolism [Recovered/Resolved]
  - Deep vein thrombosis [Recovering/Resolving]
  - Febrile neutropenia [Recovered/Resolved]

NARRATIVE: CASE EVENT DATE: 20170223
